FAERS Safety Report 19200227 (Version 1)
Quarter: 2021Q2

REPORT INFORMATION
  Report Type: Spontaneous
  Country: US (occurrence: US)
  Receive Date: 20210430
  Receipt Date: 20210430
  Transmission Date: 20210717
  Serious: No
  Sender: FDA-Public Use
  Company Number: None

PATIENT
  Age: 65 Year
  Sex: Female
  Weight: 55.34 kg

DRUGS (10)
  1. ZOFRAN [Concomitant]
     Active Substance: ONDANSETRON HYDROCHLORIDE
  2. DEXAMETHASONE 0.5MG/5ML HIKMA [Suspect]
     Active Substance: DEXAMETHASONE
     Indication: NEUROENDOCRINE TUMOUR
     Dosage: ?          OTHER FREQUENCY:QID? SWISH + SPIT;?
     Route: 048
     Dates: start: 20210406, end: 20210426
  3. ASPIRIN. [Concomitant]
     Active Substance: ASPIRIN
  4. CONJUGATED ESTROGEN [Concomitant]
     Active Substance: ESTROGENS, CONJUGATED
  5. AFINITOR [Suspect]
     Active Substance: EVEROLIMUS
     Indication: NEUROENDOCRINE TUMOUR
     Route: 048
     Dates: start: 20210406, end: 20210426
  6. CYCLOBENZAPRINE. [Concomitant]
     Active Substance: CYCLOBENZAPRINE
  7. LISINOPRIL. [Concomitant]
     Active Substance: LISINOPRIL
  8. LORATADINE. [Concomitant]
     Active Substance: LORATADINE
  9. OXYCODONE [Concomitant]
     Active Substance: OXYCODONE
  10. HYDROCHLOROTHIAZIDE. [Concomitant]
     Active Substance: HYDROCHLOROTHIAZIDE

REACTIONS (3)
  - Tongue blistering [None]
  - Malaise [None]
  - Hypophagia [None]

NARRATIVE: CASE EVENT DATE: 20210430
